FAERS Safety Report 24449870 (Version 2)
Quarter: 2024Q4

REPORT INFORMATION
  Report Type: Spontaneous
  Country: US (occurrence: US)
  Receive Date: 20241017
  Receipt Date: 20241101
  Transmission Date: 20250114
  Serious: Yes (Other)
  Sender: TEVA
  Company Number: US-TEVA-VS-3253379

PATIENT
  Age: 26 Year
  Sex: Female

DRUGS (3)
  1. VANCOMYCIN [Suspect]
     Active Substance: VANCOMYCIN
     Indication: Staphylococcal bacteraemia
     Route: 065
  2. RITUXIMAB [Concomitant]
     Active Substance: RITUXIMAB
     Indication: Multiple sclerosis
     Route: 065
  3. DAPTOMYCIN [Suspect]
     Active Substance: DAPTOMYCIN
     Indication: Staphylococcal bacteraemia
     Route: 065

REACTIONS (2)
  - Septic pulmonary embolism [Recovering/Resolving]
  - Drug ineffective [Unknown]
